FAERS Safety Report 10047216 (Version 2)
Quarter: 2014Q1

REPORT INFORMATION
  Report Type: Spontaneous
  Country: US (occurrence: US)
  Receive Date: 20140331
  Receipt Date: 20140331
  Transmission Date: 20141002
  Serious: Yes (Other)
  Sender: FDA-Public Use
  Company Number: US-MYLANLABS-2013S1020883

PATIENT
  Sex: Male
  Weight: 77.11 kg

DRUGS (2)
  1. FENTANYL TRANSDERMAL SYSTEM [Suspect]
     Indication: BACK PAIN
     Dosage: Q48H
     Route: 062
  2. NORCO [Concomitant]
     Indication: BACK PAIN
     Dosage: 10/325MG
     Route: 048

REACTIONS (5)
  - Drug effect decreased [Not Recovered/Not Resolved]
  - Drug dependence [Not Recovered/Not Resolved]
  - Back pain [Not Recovered/Not Resolved]
  - Drug withdrawal syndrome [Not Recovered/Not Resolved]
  - Muscle twitching [Not Recovered/Not Resolved]
